FAERS Safety Report 7417034-5 (Version None)
Quarter: 2011Q2

REPORT INFORMATION
  Report Type: 
  Country: None (occurrence: None)
  Receive Date: 20110415
  Receipt Date: 20080214
  Transmission Date: 20111010
  Serious: Yes (Death, Hospitalization, Other)
  Sender: FDA-Public Use
  Company Number: US-BAYER-2011-008271

PATIENT
  Age: 79 Year
  Sex: Female
  Weight: 73 kg

DRUGS (28)
  1. INDAPAMIDE [Concomitant]
     Dosage: 2.5 MG, QD
     Route: 048
     Dates: start: 19910101, end: 20030718
  2. XYLOCAINE [Concomitant]
     Dosage: 100 MG, CARDIOPULMONARY BYPASS PRIME
     Dates: start: 20030718
  3. CARDIOPLEGIA [Concomitant]
     Dosage: 810 ML, UNK, CARDIOPULMONARY BYPASS PRIME
     Route: 042
     Dates: start: 20030718, end: 20030718
  4. FRESH FROZEN PLASMA [Concomitant]
     Dosage: 4 U, UNK
     Route: 042
     Dates: start: 20030718, end: 20030718
  5. TRASYLOL [Suspect]
     Indication: CORONARY ARTERY BYPASS
     Dosage: 100 CC PUMP PRIME
     Route: 042
     Dates: start: 20030718, end: 20030718
  6. VECURONIUM BROMIDE [Concomitant]
     Dosage: UNK
     Route: 042
     Dates: start: 20030718, end: 20030718
  7. TEQUIN [Concomitant]
     Dosage: 400 MG, QD, FOR 3 DAYS
     Route: 048
     Dates: start: 20030717
  8. BEXTRA [Concomitant]
     Dosage: 20 MG, QD
     Route: 048
  9. IBUPROFEN [Concomitant]
     Dosage: AS NEEDED
  10. VANCOMYCIN [Concomitant]
     Dosage: 1 G, UNK
     Route: 042
     Dates: start: 20030718
  11. HEPARIN [Concomitant]
     Dosage: 5000 UNITS/5CC CARDIOPULMONARY BYPASS PRIME
     Dates: start: 20030718
  12. TENORMIN [Concomitant]
     Dosage: 100 MG, QD
     Route: 048
     Dates: start: 19920101, end: 20030718
  13. ACETYLSALICYLIC ACID SRT [Concomitant]
     Dosage: 325 MG, QD
     Route: 048
     Dates: end: 20030711
  14. MIDAZOLAM [Concomitant]
     Dosage: UNK
     Route: 042
     Dates: start: 20030718
  15. TRASYLOL [Suspect]
     Indication: ATRIAL SEPTAL DEFECT REPAIR
     Dosage: 25 CC/HR INFUSION
     Route: 042
     Dates: start: 20030718, end: 20030718
  16. LOVASTATIN [Concomitant]
     Dosage: 40 MG, QD
     Route: 048
     Dates: end: 20030718
  17. ISOSORBIDE DINITRATE [Concomitant]
     Dosage: 5 MG, QD
     Route: 048
     Dates: start: 19920101, end: 20030718
  18. NITROGLYCERIN [Concomitant]
     Dosage: UNK
     Route: 042
     Dates: start: 20030718
  19. NOVOLIN R [Concomitant]
     Dosage: CARDIOPULMONARY BYPASS PRIME
     Dates: start: 20030718
  20. MANNITOL [Concomitant]
     Dosage: 100 ML, UNK, CARDIOPULMONARY BYPASS PRIME
     Route: 042
     Dates: start: 20030718, end: 20030718
  21. RED BLOOD CELLS [Concomitant]
     Dosage: 8 U, UNK
     Route: 042
     Dates: start: 20030718, end: 20030718
  22. SOLU-MEDROL [Concomitant]
     Dosage: 250MG/4CC CARDIOPULMONARY BYPASS PRIME
     Dates: start: 20030718
  23. FENTANYL [Concomitant]
     Dosage: UNK
     Route: 042
     Dates: start: 20030718
  24. PLASMA-LYTE A [Concomitant]
     Dosage: 1200 ML, UNK, CARDIOPULMONARY BYPASS PRIME
     Route: 042
     Dates: start: 20030718, end: 20030718
  25. PLATELETS [Concomitant]
     Dosage: 3 U, UNK
     Route: 042
     Dates: start: 20030718, end: 20030718
  26. TRASYLOL [Suspect]
     Indication: MITRAL VALVE REPAIR
     Dosage: 1 ML, UNK, INITIAL TEST DOSE
     Route: 042
     Dates: start: 20030718, end: 20030718
  27. NIFEDIPINE [Concomitant]
     Dosage: 60 MG, QD, CONTROLLED RELEASE
     Route: 048
     Dates: end: 20030718
  28. EPINEPHRINE [Concomitant]
     Dosage: UNK
     Route: 042
     Dates: start: 20030718

REACTIONS (14)
  - DEATH [None]
  - OEDEMA [None]
  - UNEVALUABLE EVENT [None]
  - INJURY [None]
  - EXTREMITY NECROSIS [None]
  - FEAR [None]
  - EMOTIONAL DISTRESS [None]
  - RENAL INJURY [None]
  - ANXIETY [None]
  - PAIN [None]
  - RENAL IMPAIRMENT [None]
  - SEPSIS [None]
  - RENAL FAILURE [None]
  - STRESS [None]
